FAERS Safety Report 5593039-4 (Version None)
Quarter: 2008Q1

REPORT INFORMATION
  Report Type: 
  Country: None (occurrence: None)
  Receive Date: 20080116
  Receipt Date: 20080107
  Transmission Date: 20080703
  Serious: Yes (Hospitalization)
  Sender: FDA-Public Use
  Company Number: US-JNJFOC-20080101517

PATIENT
  Sex: Female
  Weight: 27.22 kg

DRUGS (1)
  1. CONCERTA [Suspect]
     Indication: ATTENTION DEFICIT/HYPERACTIVITY DISORDER
     Route: 048

REACTIONS (3)
  - APPENDICITIS PERFORATED [None]
  - GROWTH RETARDATION [None]
  - OBSESSIVE-COMPULSIVE DISORDER [None]
